FAERS Safety Report 7535316-3 (Version None)
Quarter: 2011Q2

REPORT INFORMATION
  Report Type: 
  Country: None (occurrence: None)
  Receive Date: 20110609
  Receipt Date: 20080208
  Transmission Date: 20111010
  Serious: Yes (Hospitalization, Disabling, Other)
  Sender: FDA-Public Use
  Company Number: PHFR2008GB00619

PATIENT
  Sex: Male

DRUGS (3)
  1. CLOZAPINE [Suspect]
     Indication: SCHIZOPHRENIA
     Dosage: 300 MG PER DAY
     Route: 048
     Dates: start: 20021022
  2. PAROXETINE HCL [Concomitant]
     Indication: DEPRESSION
     Dosage: 30 MG PER DAY
     Route: 048
     Dates: start: 20030101, end: 20080101
  3. VALPROATE SODIUM [Concomitant]
     Indication: DEPRESSION
     Dosage: 300 MG, BID
     Route: 048
     Dates: start: 20030101, end: 20080101

REACTIONS (2)
  - ARTERIOSCLEROSIS [None]
  - CHEST PAIN [None]
